FAERS Safety Report 25665684 (Version 1)
Quarter: 2025Q3

REPORT INFORMATION
  Report Type: Spontaneous
  Country: US (occurrence: US)
  Receive Date: 20250811
  Receipt Date: 20250811
  Transmission Date: 20251020
  Serious: No
  Sender: RECKITT BENCKISER
  Company Number: US-PROD-AS2-212756134-20-24-USA-RB-0014735

PATIENT
  Age: 92 Year
  Sex: Female

DRUGS (1)
  1. MUCINEX [Suspect]
     Active Substance: GUAIFENESIN
     Indication: Upper-airway cough syndrome
     Dosage: TOOK 15 PILLS IN TOTAL
     Route: 048
     Dates: end: 20241202

REACTIONS (2)
  - Incorrect product administration duration [Unknown]
  - Product use in unapproved indication [Unknown]
